FAERS Safety Report 10459372 (Version 1)
Quarter: 2014Q3

REPORT INFORMATION
  Report Type: Spontaneous
  Country: US (occurrence: None)
  Receive Date: 20140915
  Receipt Date: 20140915
  Transmission Date: 20150326
  Serious: Yes (Other)
  Sender: FDA-Public Use
  Company Number: 001799321A

PATIENT
  Age: 26 Year
  Sex: Female

DRUGS (6)
  1. PROACTIVPLUS SKIN SMOOTHING EXFOLIATOR [Suspect]
     Active Substance: BENZOYL PEROXIDE
     Indication: ACNE
     Dosage: TWICE DAILY, DERMAL
     Dates: start: 20140818, end: 20140821
  2. PROACTIV PLUS PORE TARGETING TREATMENT [Suspect]
     Active Substance: BENZOYL PEROXIDE
     Indication: ACNE
     Dosage: TWICE DAILY, DERMAL
     Dates: start: 20140818, end: 20140821
  3. PROACTIV PLUS CLEANSING BODY BAR [Suspect]
     Active Substance: SALICYLIC ACID
     Indication: ACNE
     Dosage: TWICE DAILY, DERMAL
     Dates: start: 20140818, end: 20140821
  4. PROACTIV PLUS SKIN PURIFYING MASK [Suspect]
     Active Substance: SULFUR
     Indication: ACNE
     Dosage: TWICE DAILY, DERMAL
     Dates: start: 20140818, end: 20140821
  5. PROACTIV PLUS COMPLEXION PERFECTING HYDRATOR [Suspect]
     Active Substance: SALICYLIC ACID
     Indication: ACNE
     Dosage: TWICE DAILY, DERMAL
     Dates: start: 20140818, end: 20140821
  6. PROACTIV PLUS EMERGENCY BLEMISH RELIEF [Suspect]
     Active Substance: BENZOYL PEROXIDE
     Indication: ACNE
     Dosage: TWICE DAILY, DERMAL
     Dates: start: 20140818, end: 20140821

REACTIONS (3)
  - Pyrexia [None]
  - Dehydration [None]
  - Rash erythematous [None]

NARRATIVE: CASE EVENT DATE: 20140821
